FAERS Safety Report 25979184 (Version 1)
Quarter: 2025Q4

REPORT INFORMATION
  Report Type: Spontaneous
  Country: EU (occurrence: EU)
  Receive Date: 20251030
  Receipt Date: 20251030
  Transmission Date: 20260117
  Serious: Yes (Other)
  Sender: BECTON DICKINSON
  Company Number: EU-BECTON DICKINSON-SE-BD-25-000497

PATIENT
  Age: 58 Year
  Sex: Female

DRUGS (1)
  1. CHLORAPREP WITH TINT [Suspect]
     Active Substance: CHLORHEXIDINE GLUCONATE\ISOPROPYL ALCOHOL
     Indication: Infection prophylaxis
     Dosage: 1 DOSAGE FORM
     Route: 061
     Dates: start: 20250616

REACTIONS (4)
  - Discomfort [Unknown]
  - Erythema [Recovered/Resolved]
  - Pruritus [Unknown]
  - Skin irritation [Unknown]

NARRATIVE: CASE EVENT DATE: 20250708
